FAERS Safety Report 6310314-6 (Version None)
Quarter: 2009Q3

REPORT INFORMATION
  Report Type: 
  Country: None (occurrence: None)
  Receive Date: 20090814
  Receipt Date: 20090806
  Transmission Date: 20100115
  Serious: Yes (Death)
  Sender: FDA-Public Use
  Company Number: DE-ROCHE-641546

PATIENT
  Age: 53 Year
  Weight: 60 kg

DRUGS (5)
  1. CAPECITABINE [Suspect]
     Route: 065
     Dates: start: 20070509, end: 20070612
  2. CAPECITABINE [Suspect]
     Route: 065
     Dates: start: 20070704, end: 20080205
  3. FASLODEX [Concomitant]
     Dates: start: 20080214, end: 20080702
  4. BONDRONAT [Concomitant]
     Dates: start: 20070704, end: 20081022
  5. NAVELBINE [Concomitant]
     Dates: start: 20080819, end: 20081022

REACTIONS (1)
  - BREAST CANCER [None]
